FAERS Safety Report 15415776 (Version 1)
Quarter: 2018Q3

REPORT INFORMATION
  Report Type: Spontaneous
  Country: US (occurrence: US)
  Receive Date: 20180922
  Receipt Date: 20180922
  Transmission Date: 20181010
  Serious: No
  Sender: FDA-Public Use
  Company Number: US-JNJFOC-20180911328

PATIENT
  Age: 81 Year
  Sex: Female
  Weight: 58.51 kg

DRUGS (1)
  1. KETOCONAZOLE. [Suspect]
     Active Substance: KETOCONAZOLE
     Indication: PRODUCT USED FOR UNKNOWN INDICATION
     Route: 061
     Dates: start: 20180904

REACTIONS (2)
  - Pruritus [Unknown]
  - Ear discomfort [Unknown]

NARRATIVE: CASE EVENT DATE: 201809
